FAERS Safety Report 4724459-5 (Version None)
Quarter: 2005Q3

REPORT INFORMATION
  Report Type: 
  Country: None (occurrence: None)
  Receive Date: 20050721
  Receipt Date: 20050708
  Transmission Date: 20060218
  Serious: Yes (Hospitalization)
  Sender: FDA-Public Use
  Company Number: 2005098853

PATIENT
  Age: 65 Year
  Sex: Female

DRUGS (4)
  1. ARTHROTEC [Suspect]
     Indication: ILL-DEFINED DISORDER
     Dosage: ORAL
     Route: 048
     Dates: start: 20050424, end: 20050530
  2. ZINACEF [Suspect]
     Indication: ILL-DEFINED DISORDER
     Dosage: 2250 MG (750 MG, 3 IN 1 D), INTRAVENOUS
     Route: 042
     Dates: start: 20050422, end: 20050518
  3. NOVALGIN (METAMIZOLE SODIUM) [Suspect]
     Indication: ILL-DEFINED DISORDER
     Dosage: ORAL
     Route: 048
     Dates: start: 20050517, end: 20050526
  4. MIACALCIN [Concomitant]

REACTIONS (22)
  - ASPARTATE AMINOTRANSFERASE INCREASED [None]
  - BLOOD ALKALINE PHOSPHATASE INCREASED [None]
  - BLOOD CREATININE INCREASED [None]
  - BRONCHITIS [None]
  - CHILLS [None]
  - COUGH [None]
  - DRUG RASH WITH EOSINOPHILIA AND SYSTEMIC SYMPTOMS [None]
  - DYSPNOEA AT REST [None]
  - ECZEMA [None]
  - EOSINOPHILIA [None]
  - EOSINOPHILIC PNEUMONIA [None]
  - GAMMA-GLUTAMYLTRANSFERASE INCREASED [None]
  - HYPERSENSITIVITY [None]
  - LEUKOCYTOCLASTIC VASCULITIS [None]
  - LEUKOCYTOSIS [None]
  - LIVER DISORDER [None]
  - LUNG DISORDER [None]
  - LYMPHADENOPATHY [None]
  - PETECHIAE [None]
  - PRURITUS [None]
  - RASH PRURITIC [None]
  - RENAL IMPAIRMENT [None]
